FAERS Safety Report 20561563 (Version 2)
Quarter: 2022Q1

REPORT INFORMATION
  Report Type: Report from Study
  Country: US (occurrence: None)
  Receive Date: 20220307
  Receipt Date: 20220324
  Transmission Date: 20220423
  Serious: No
  Sender: FDA-Public Use
  Company Number: US-ROCHE-3040027

PATIENT
  Age: 60 Year
  Sex: Female
  Weight: 51 kg

DRUGS (26)
  1. COBIMETINIB [Suspect]
     Active Substance: COBIMETINIB
     Indication: Ovarian cancer recurrent
     Dosage: DOSE LAST STUDY DRUG ADMIN PRIOR SAE IS 40 MG?ON 27-FEB-2022 RECEIVED MOST RECENT DOSE OF STUDY DRUG
     Route: 048
     Dates: start: 20210212
  2. NIRAPARIB [Suspect]
     Active Substance: NIRAPARIB
     Indication: Ovarian cancer recurrent
     Dosage: DOSE LAST STUDY DRUG ADMIN PRIOR SAE IS 100 MG?ON 27-FEB-2022 RECEIVED MOST RECENT DOSE OF STUDY DRU
     Route: 048
     Dates: start: 20210212
  3. ATEZOLIZUMAB [Suspect]
     Active Substance: ATEZOLIZUMAB
     Indication: Ovarian cancer recurrent
     Dosage: DOSE LAST STUDY DRUG ADMIN PRIOR SAE IS 840 MG?ON 25-FEB-2022 RECEIVED MOST RECENT DOSE OF STUDY DRU
     Route: 042
     Dates: start: 20211217
  4. OMEGA-3 FATTY ACIDS [Concomitant]
     Active Substance: OMEGA-3 FATTY ACIDS
     Route: 048
  5. MELATONIN [Concomitant]
     Active Substance: MELATONIN
     Dosage: GIVEN FOR PROPHYLAXIS IS NO ;ONGOING: YES
     Route: 048
  6. MAGNESIUM GLUCONATE [Concomitant]
     Active Substance: MAGNESIUM GLUCONATE
     Route: 048
  7. LUTEIN [Concomitant]
     Active Substance: LUTEIN
     Dosage: DRUG DOSE FIRST ADMINISTERED IS 1 TABLET?GIVEN FOR PROPHYLAXIS IS YES ;ONGOING: YES
     Route: 048
  8. LACTOBACILLUS ACIDOPHILUS [Concomitant]
     Active Substance: LACTOBACILLUS ACIDOPHILUS
     Route: 048
  9. DOXAZOSIN [Concomitant]
     Active Substance: DOXAZOSIN MESYLATE
     Route: 048
     Dates: start: 20190617
  10. LINZESS [Concomitant]
     Active Substance: LINACLOTIDE
     Route: 048
     Dates: start: 20190729, end: 20220210
  11. ONDANSETRON [Concomitant]
     Active Substance: ONDANSETRON
     Route: 048
     Dates: start: 20210212
  12. LORAZEPAM [Concomitant]
     Active Substance: LORAZEPAM
     Route: 060
     Dates: start: 20210212
  13. PROMETHAZINE [Concomitant]
     Active Substance: PROMETHAZINE HYDROCHLORIDE
     Route: 048
     Dates: start: 20210312
  14. ESCITALOPRAM [Concomitant]
     Active Substance: ESCITALOPRAM OXALATE
     Route: 048
     Dates: start: 20210625
  15. IBUPROFEN [Concomitant]
     Active Substance: IBUPROFEN
     Dates: start: 20210730
  16. ASCORBIC ACID;BIOTIN;CALCIUM PANTOTHENATE;CYANOCOBALAMIN;FOLIC ACID;NI [Concomitant]
     Route: 048
  17. LIDOCAINE [Concomitant]
     Active Substance: LIDOCAINE
     Indication: Pain
     Route: 061
     Dates: start: 20190906
  18. CYCLOSPORINE [Concomitant]
     Active Substance: CYCLOSPORINE
     Route: 047
  19. PREDNISONE [Concomitant]
     Active Substance: PREDNISONE
     Indication: Colitis
     Route: 048
     Dates: start: 20220302, end: 20220308
  20. PREDNISONE [Concomitant]
     Active Substance: PREDNISONE
     Route: 048
     Dates: start: 20220309, end: 20220315
  21. PREDNISONE [Concomitant]
     Active Substance: PREDNISONE
     Route: 048
     Dates: start: 20220316
  22. MOVANTIK [Concomitant]
     Active Substance: NALOXEGOL OXALATE
     Indication: Constipation
     Dates: start: 20220103, end: 20220222
  23. DICYCLOMINE [Concomitant]
     Active Substance: DICYCLOMINE HYDROCHLORIDE
     Indication: Irritable bowel syndrome
     Route: 048
     Dates: start: 20220106, end: 20220222
  24. PLECANATIDE [Concomitant]
     Active Substance: PLECANATIDE
     Indication: Irritable bowel syndrome
     Dates: start: 20220106
  25. PROCTO MED HC [Concomitant]
     Indication: Haemorrhoids
     Dosage: 1 OTHER
     Route: 054
     Dates: start: 20220211
  26. MESALAMINE [Concomitant]
     Active Substance: MESALAMINE
     Indication: Colitis
     Dosage: 1 OTHER
     Route: 054
     Dates: start: 20220228

REACTIONS (1)
  - Colitis [Not Recovered/Not Resolved]

NARRATIVE: CASE EVENT DATE: 20220228
